FAERS Safety Report 5519416-5 (Version None)
Quarter: 2007Q4

REPORT INFORMATION
  Report Type: 
  Country: None (occurrence: None)
  Receive Date: 20071116
  Receipt Date: 20071107
  Transmission Date: 20080405
  Serious: Yes (Hospitalization)
  Sender: FDA-Public Use
  Company Number: FR-AMGEN-UK245473

PATIENT
  Sex: Female

DRUGS (4)
  1. KINERET [Suspect]
     Indication: JUVENILE ARTHRITIS
     Route: 058
     Dates: start: 20061121
  2. SOLU-MEDROL [Concomitant]
     Route: 065
     Dates: start: 20070801
  3. OGAST [Concomitant]
     Route: 048
     Dates: start: 20070301
  4. AERIUS [Concomitant]
     Route: 065
     Dates: start: 20070928

REACTIONS (4)
  - DISEASE PROGRESSION [None]
  - PYREXIA [None]
  - VIRAL INFECTION [None]
  - VOMITING [None]
